FAERS Safety Report 12290500 (Version 4)
Quarter: 2016Q3

REPORT INFORMATION
  Report Type: Report from Study
  Country: CA (occurrence: CA)
  Receive Date: 20160421
  Receipt Date: 20160719
  Transmission Date: 20161109
  Serious: Yes (Other)
  Sender: FDA-Public Use
  Company Number: CA-SA-2015SA049374

PATIENT
  Age: 42 Year
  Sex: Female
  Weight: 57 kg

DRUGS (15)
  1. ACYCLOVIR. [Concomitant]
     Active Substance: ACYCLOVIR
     Indication: PROPHYLAXIS
     Route: 048
     Dates: start: 20150413
  2. ZANTAC [Concomitant]
     Active Substance: RANITIDINE HYDROCHLORIDE
     Indication: PROPHYLAXIS
     Route: 048
     Dates: start: 20150412, end: 20150421
  3. LEMTRADA [Suspect]
     Active Substance: ALEMTUZUMAB
     Indication: MULTIPLE SCLEROSIS
     Route: 042
     Dates: start: 20150413, end: 20150417
  4. BENADRYL [Concomitant]
     Active Substance: DIPHENHYDRAMINE HYDROCHLORIDE
     Indication: PREMEDICATION
     Route: 048
     Dates: start: 20150413, end: 20150417
  5. PREDNISONE. [Concomitant]
     Active Substance: PREDNISONE
     Route: 042
     Dates: start: 20150413
  6. HYDROCORTISONE. [Concomitant]
     Active Substance: HYDROCORTISONE
     Indication: PREMEDICATION
     Route: 042
     Dates: start: 20150416
  7. METHYLPREDNISOLONE. [Concomitant]
     Active Substance: METHYLPREDNISOLONE
     Route: 042
     Dates: start: 20150413, end: 20150417
  8. CLARITIN [Concomitant]
     Active Substance: LORATADINE
     Dosage: 2-3 SPRAYS
  9. ATIVAN [Concomitant]
     Active Substance: LORAZEPAM
     Indication: INSOMNIA
     Route: 048
  10. NASONEX [Concomitant]
     Active Substance: MOMETASONE FUROATE
     Dosage: 1 SPRAY
  11. REACTINE [Concomitant]
     Active Substance: CETIRIZINE HYDROCHLORIDE
     Indication: PROPHYLAXIS
     Route: 048
     Dates: start: 20150412, end: 20150421
  12. LEMTRADA [Suspect]
     Active Substance: ALEMTUZUMAB
     Indication: MULTIPLE SCLEROSIS
     Route: 042
     Dates: start: 20150413, end: 20150417
  13. BENADRYL [Concomitant]
     Active Substance: DIPHENHYDRAMINE HYDROCHLORIDE
     Indication: PREMEDICATION
     Route: 042
     Dates: start: 20150416
  14. GRAVOL [Concomitant]
     Active Substance: DIMENHYDRINATE
     Dosage: Q4H, PRN
     Route: 048
     Dates: start: 20150413, end: 20150417
  15. TYLENOL [Concomitant]
     Active Substance: ACETAMINOPHEN
     Dosage: Q6H, PRN
     Route: 048
     Dates: start: 20150413, end: 20150417

REACTIONS (15)
  - Rash [Recovered/Resolved]
  - Urine abnormality [Recovered/Resolved]
  - Dyspepsia [Recovering/Resolving]
  - Cough [Recovered/Resolved]
  - Pseudomonas infection [Recovered/Resolved]
  - Muscular weakness [Recovered/Resolved]
  - Abdominal pain upper [Recovering/Resolving]
  - Headache [Not Recovered/Not Resolved]
  - Bradycardia [Recovered/Resolved]
  - Urinary sediment present [Unknown]
  - Pruritus [Recovered/Resolved]
  - White blood cells urine positive [Not Recovered/Not Resolved]
  - Blood creatinine increased [Unknown]
  - Lymphocyte count decreased [Recovered/Resolved]
  - Back pain [Not Recovered/Not Resolved]

NARRATIVE: CASE EVENT DATE: 2015
